FAERS Safety Report 5447675-6 (Version None)
Quarter: 2007Q3

REPORT INFORMATION
  Report Type: 
  Country: None (occurrence: None)
  Receive Date: 20070906
  Receipt Date: 20070906
  Transmission Date: 20080115
  Serious: Yes (Life-Threatening)
  Sender: FDA-Public Use
  Company Number: None

PATIENT
  Age: 67 Year
  Sex: Male
  Weight: 75 kg

DRUGS (6)
  1. HURRICANE SPRAY (BENZOCAINE) [Suspect]
     Indication: PHARYNGOLARYNGEAL PAIN
     Dosage: 20% SPRAY ONCE ORAL
     Route: 048
     Dates: start: 20070813
  2. NYSTATIN [Concomitant]
  3. FLUCONAZOLE [Concomitant]
  4. METOPROLOL SUCCINATE [Concomitant]
  5. PROTONIX [Concomitant]
  6. ZOSYN [Concomitant]

REACTIONS (4)
  - DYSPNOEA [None]
  - METHAEMOGLOBINAEMIA [None]
  - OVERDOSE [None]
  - TACHYPNOEA [None]
